FAERS Safety Report 16406091 (Version 1)
Quarter: 2019Q2

REPORT INFORMATION
  Report Type: Spontaneous
  Country: US (occurrence: US)
  Receive Date: 20190607
  Receipt Date: 20190607
  Transmission Date: 20190711
  Serious: No
  Sender: FDA-Public Use
  Company Number: US-ALLERGAN-1906896US

PATIENT
  Age: 60 Year
  Sex: Female

DRUGS (5)
  1. VIBERZI [Suspect]
     Active Substance: ELUXADOLINE
     Dosage: 75 MG, BID
     Route: 065
  2. VIBERZI [Suspect]
     Active Substance: ELUXADOLINE
     Dosage: 100 MG, BID
     Route: 065
  3. VIBERZI [Suspect]
     Active Substance: ELUXADOLINE
     Indication: PRODUCT USED FOR UNKNOWN INDICATION
     Dosage: 75 MG, QOD
     Route: 065
  4. VIBERZI [Suspect]
     Active Substance: ELUXADOLINE
     Dosage: 100 MG, QD
     Route: 065
  5. VIBERZI [Suspect]
     Active Substance: ELUXADOLINE
     Dosage: 75 MG, QD
     Route: 065

REACTIONS (2)
  - Off label use [Unknown]
  - Constipation [Recovered/Resolved]
